FAERS Safety Report 17562619 (Version 1)
Quarter: 2020Q1

REPORT INFORMATION
  Report Type: Spontaneous
  Country: AU (occurrence: AU)
  Receive Date: 20200319
  Receipt Date: 20200319
  Transmission Date: 20200409
  Serious: Yes (Other)
  Sender: FDA-Public Use
  Company Number: NVSC2020AU075017

PATIENT
  Age: 57 Year
  Sex: Male

DRUGS (4)
  1. IRINOTECAN [Suspect]
     Active Substance: IRINOTECAN
     Indication: ADENOCARCINOMA
     Dosage: UNK, CYCLIC
     Route: 065
     Dates: start: 201903
  2. CETUXIMAB. [Suspect]
     Active Substance: CETUXIMAB
     Indication: ADENOCARCINOMA
     Dosage: UNK UNK, CYCLIC
     Route: 065
     Dates: start: 201903
  3. FLUOROURACIL. [Suspect]
     Active Substance: FLUOROURACIL
     Indication: ADENOCARCINOMA
     Dosage: UNK, CYCLIC
     Route: 065
     Dates: start: 201903
  4. CALCIUM FOLINATE [Suspect]
     Active Substance: LEUCOVORIN CALCIUM
     Indication: ADENOCARCINOMA
     Dosage: UNK, CYCLIC
     Route: 065
     Dates: start: 201903

REACTIONS (4)
  - Nausea [Recovered/Resolved]
  - Blindness [Recovered/Resolved]
  - Headache [Recovered/Resolved]
  - Optic neuritis [Recovered/Resolved]
